FAERS Safety Report 12324514 (Version 1)
Quarter: 2016Q2

REPORT INFORMATION
  Report Type: Report from Study
  Country: US (occurrence: US)
  Receive Date: 20160502
  Receipt Date: 20160502
  Transmission Date: 20160815
  Serious: No
  Sender: FDA-Public Use
  Company Number: US-ABBVIE-15P-163-1469896-00

PATIENT
  Age: 38 Year
  Sex: Male

DRUGS (1)
  1. ANDROGEL [Suspect]
     Active Substance: TESTOSTERONE
     Indication: BLOOD TESTOSTERONE DECREASED
     Dosage: APPLY FOUR PUMPS TO THE SKIN EVERY DAY ON UPPER ARMS/SHOULDER AND LOWER ABDOMEN
     Route: 065
     Dates: start: 20150916

REACTIONS (2)
  - Insomnia [Recovered/Resolved]
  - Drug administered at inappropriate site [Unknown]

NARRATIVE: CASE EVENT DATE: 20150916
